FAERS Safety Report 16301587 (Version 5)
Quarter: 2021Q3

REPORT INFORMATION
  Report Type: Report from Study
  Country: US (occurrence: US)
  Receive Date: 20190511
  Receipt Date: 20210810
  Transmission Date: 20211014
  Serious: Yes (Hospitalization, Other)
  Sender: FDA-Public Use
  Company Number: US-TAKEDA-2016US006506

PATIENT
  Age: 36 Year
  Sex: Female

DRUGS (3)
  1. PONATINIB [Suspect]
     Active Substance: PONATINIB
     Indication: CHRONIC MYELOID LEUKAEMIA
     Dosage: 45 MILLIGRAM, QD
     Route: 048
     Dates: start: 20140211
  2. PONATINIB [Suspect]
     Active Substance: PONATINIB
     Dosage: 30 MILLIGRAM, QD
     Route: 048
  3. ASA [Concomitant]
     Active Substance: ASPIRIN
     Dosage: 325 MILLIGRAM, QD
     Route: 048

REACTIONS (23)
  - Skin hypertrophy [Unknown]
  - Weight decreased [Unknown]
  - Adverse drug reaction [Unknown]
  - Graft versus host disease [Unknown]
  - Illness [Unknown]
  - Muscle spasms [Unknown]
  - Asthenia [Unknown]
  - Fatigue [Unknown]
  - Abdominal discomfort [Unknown]
  - Nausea [Not Recovered/Not Resolved]
  - Skin exfoliation [Unknown]
  - Skin indentation [Unknown]
  - Erythema [Unknown]
  - Bone marrow transplant [Not Recovered/Not Resolved]
  - Chronic myeloid leukaemia recurrent [Unknown]
  - Arthralgia [Not Recovered/Not Resolved]
  - Myalgia [Not Recovered/Not Resolved]
  - Neck pain [Recovered/Resolved]
  - Pain [Unknown]
  - Skin irritation [Unknown]
  - Dry skin [Unknown]
  - Dry eye [Unknown]
  - Product dose omission issue [Unknown]

NARRATIVE: CASE EVENT DATE: 20181108
